FAERS Safety Report 23423437 (Version 1)
Quarter: 2024Q1

REPORT INFORMATION
  Report Type: Other
  Country: None (occurrence: US)
  Receive Date: 20240119
  Receipt Date: 20240119
  Transmission Date: 20240409
  Serious: Yes (Other)
  Sender: FDA-Public Use
  Company Number: US-Fagron Sterile Services-2151616

PATIENT
  Age: 69 Year
  Sex: Female
  Weight: 115.7 kg

DRUGS (1)
  1. SUCCINYLCHOLINE CHLORIDE [Suspect]
     Active Substance: SUCCINYLCHOLINE CHLORIDE

REACTIONS (1)
  - Drug ineffective [None]
